FAERS Safety Report 6293261-8 (Version None)
Quarter: 2009Q3

REPORT INFORMATION
  Report Type: 
  Country: None (occurrence: None)
  Receive Date: 20090731
  Receipt Date: 20090722
  Transmission Date: 20100115
  Serious: Yes (Hospitalization)
  Sender: FDA-Public Use
  Company Number: IN-WATSON-2009-05767

PATIENT
  Age: 30 Year
  Sex: Male

DRUGS (1)
  1. CHLOROQUINE (WATSON LABORATORIES) [Suspect]
     Indication: MALARIA
     Dosage: 4 TABLET STAT, 1 BID FOR 4 DAYS
     Route: 048

REACTIONS (1)
  - MANIA [None]
